FAERS Safety Report 16285703 (Version 1)
Quarter: 2019Q2

REPORT INFORMATION
  Report Type: Report from Study
  Country: US (occurrence: US)
  Receive Date: 20190508
  Receipt Date: 20190508
  Transmission Date: 20190711
  Serious: Yes (Hospitalization)
  Sender: FDA-Public Use
  Company Number: US-ROCHE-2310726

PATIENT
  Age: 61 Year
  Sex: Female

DRUGS (41)
  1. ISONIAZID. [Concomitant]
     Active Substance: ISONIAZID
  2. ONDANSETRON [Concomitant]
     Active Substance: ONDANSETRON
  3. LIDOCAINE. [Concomitant]
     Active Substance: LIDOCAINE
  4. PREDNISONE. [Concomitant]
     Active Substance: PREDNISONE
  5. PYRIDOXINE [Concomitant]
     Active Substance: PYRIDOXINE
  6. CEFAZOLIN [Concomitant]
     Active Substance: CEFAZOLIN
  7. DARBEPOETIN ALFA [Concomitant]
     Active Substance: DARBEPOETIN ALFA
  8. SIMETHICONE (DIMETHICONE) [Concomitant]
     Active Substance: DIMETHICONE
  9. MORPHINE [Concomitant]
     Active Substance: MORPHINE
  10. BLINDED QPI-1002 [Suspect]
     Active Substance: TEPRASIRAN
     Indication: PRODUCT USED FOR UNKNOWN INDICATION
     Route: 065
  11. HEPARIN [Concomitant]
     Active Substance: HEPARIN SODIUM
  12. CALCIUM ACETATE. [Concomitant]
     Active Substance: CALCIUM ACETATE
  13. FAMOTIDINE. [Concomitant]
     Active Substance: FAMOTIDINE
  14. SIMVASTATIN. [Concomitant]
     Active Substance: SIMVASTATIN
  15. METHYLPREDNISOLONE. [Concomitant]
     Active Substance: METHYLPREDNISOLONE
  16. CLOTRIMAZOLE. [Concomitant]
     Active Substance: CLOTRIMAZOLE
  17. INSULIN ASPART [Concomitant]
     Active Substance: INSULIN ASPART
  18. TRIMETHOPRIM SULFAMETHOXAZOLE [Concomitant]
     Active Substance: SULFAMETHOXAZOLE\TRIMETHOPRIM
  19. MORPHINE SULFATE. [Concomitant]
     Active Substance: MORPHINE SULFATE
  20. ASPIRIN [ACETYLSALICYLIC ACID] [Concomitant]
     Active Substance: ASPIRIN
  21. FUROSEMIDE. [Concomitant]
     Active Substance: FUROSEMIDE
  22. CALCIUM CHLORIDE. [Concomitant]
     Active Substance: CALCIUM CHLORIDE
  23. NORMAL SALINE [Concomitant]
     Active Substance: SODIUM CHLORIDE
  24. INSULIN DETEMIR [Concomitant]
     Active Substance: INSULIN DETEMIR
  25. RED BLOOD CELLS [Concomitant]
     Active Substance: HUMAN RED BLOOD CELL
  26. NOVOLOG [Concomitant]
     Active Substance: INSULIN ASPART
  27. METOPROLOL TARTRATE. [Concomitant]
     Active Substance: METOPROLOL TARTRATE
  28. TACROLIMUS. [Concomitant]
     Active Substance: TACROLIMUS
  29. PANTOPRAZOLE [Concomitant]
     Active Substance: PANTOPRAZOLE
  30. MYCOPHENOLATE MOFETIL. [Suspect]
     Active Substance: MYCOPHENOLATE MOFETIL
     Indication: PRODUCT USED FOR UNKNOWN INDICATION
     Route: 065
  31. NIFEDICAL XL [Concomitant]
     Active Substance: NIFEDIPINE
  32. LANTUS [Concomitant]
     Active Substance: INSULIN GLARGINE
  33. PERCOCET [Concomitant]
     Active Substance: ACETAMINOPHEN\OXYCODONE HYDROCHLORIDE
  34. THYMOGLOBULIN [Concomitant]
     Active Substance: LAPINE T-LYMPHOCYTE IMMUNE GLOBULIN
  35. DIPHENHYDRAMINE. [Concomitant]
     Active Substance: DIPHENHYDRAMINE
  36. DOCUSATE [Concomitant]
     Active Substance: DOCUSATE
  37. VALCYTE [Concomitant]
     Active Substance: VALGANCICLOVIR HYDROCHLORIDE
  38. ALBUMIN [Concomitant]
     Active Substance: ALBUMIN HUMAN
  39. SENSIPAR [Concomitant]
     Active Substance: CINACALCET HYDROCHLORIDE
  40. ACETAMINOPHEN. [Concomitant]
     Active Substance: ACETAMINOPHEN
  41. OMEPRAZOLE. [Concomitant]
     Active Substance: OMEPRAZOLE

REACTIONS (6)
  - Delayed graft function [Recovered/Resolved]
  - Transplant rejection [Recovered/Resolved]
  - Vomiting [Recovered/Resolved]
  - Nausea [Recovered/Resolved]
  - Blood creatine increased [Recovered/Resolved]
  - Abdominal pain [Recovered/Resolved]

NARRATIVE: CASE EVENT DATE: 20170405
